FAERS Safety Report 6348657-2 (Version None)
Quarter: 2009Q3

REPORT INFORMATION
  Report Type: 
  Country: None (occurrence: None)
  Receive Date: 20090911
  Receipt Date: 20090902
  Transmission Date: 20100115
  Serious: Yes (Hospitalization)
  Sender: FDA-Public Use
  Company Number: IT-ASTRAZENECA-2009SE11105

PATIENT
  Sex: Female

DRUGS (1)
  1. PROPOFOL [Suspect]
     Route: 042

REACTIONS (2)
  - BRONCHOSTENOSIS [None]
  - RASH PAPULAR [None]
